FAERS Safety Report 14706725 (Version 1)
Quarter: 2018Q2

REPORT INFORMATION
  Report Type: Spontaneous
  Country: IN (occurrence: IN)
  Receive Date: 20180402
  Receipt Date: 20180402
  Transmission Date: 20180711
  Serious: Yes (Other)
  Sender: FDA-Public Use
  Company Number: IN-MYLANLABS-2018M1020243

PATIENT
  Age: 10 Year
  Sex: Male

DRUGS (1)
  1. PREDNISOLONE. [Suspect]
     Active Substance: PREDNISOLONE
     Indication: ENDOCARDITIS RHEUMATIC
     Route: 048

REACTIONS (2)
  - Hypertension [Recovered/Resolved]
  - Incorrect dose administered [Recovered/Resolved]
